FAERS Safety Report 24562605 (Version 2)
Quarter: 2024Q4

REPORT INFORMATION
  Report Type: Spontaneous
  Country: US (occurrence: US)
  Receive Date: 20241029
  Receipt Date: 20241217
  Transmission Date: 20250115
  Serious: Yes (Other)
  Sender: PFIZER
  Company Number: US-SEATTLE GENETICS-2024SGN02217

PATIENT
  Age: 78 Year
  Sex: Male
  Weight: 86.18 kg

DRUGS (3)
  1. TUKYSA [Suspect]
     Active Substance: TUCATINIB
     Indication: Colon cancer stage IV
     Dosage: 150 MG CAPLET + I TAKE 4 PILLS/DAY/TWICE. 2 PILLS IN THE MORNING AT 10, 2 PILLS IN THE EVENING AT 10
  2. LISINOPRIL [Concomitant]
     Active Substance: LISINOPRIL
     Indication: Cardiac disorder
     Dosage: 5 MG, 1X/DAY/I HAVE BEEN TAKING THAT PRIOR TO 2 CAPLETS
  3. JARDIANCE [Concomitant]
     Active Substance: EMPAGLIFLOZIN
     Dosage: UNK

REACTIONS (2)
  - Neoplasm malignant [Recovering/Resolving]
  - Therapeutic response unexpected [Unknown]
